FAERS Safety Report 19101423 (Version 1)
Quarter: 2021Q2

REPORT INFORMATION
  Report Type: Spontaneous
  Country: US (occurrence: US)
  Receive Date: 20210406
  Receipt Date: 20210406
  Transmission Date: 20210717
  Serious: Yes (Other)
  Sender: FDA-Public Use
  Company Number: None

PATIENT
  Age: 19 Year
  Sex: Female
  Weight: 49.5 kg

DRUGS (3)
  1. MELATONIN [Concomitant]
     Active Substance: MELATONIN
  2. VITAMIN D SUPPLEMENTS [Concomitant]
  3. JUNEL FE 1/20 [Suspect]
     Active Substance: ETHINYL ESTRADIOL\NORETHINDRONE ACETATE
     Indication: CONTRACEPTION
     Route: 048
     Dates: start: 20210124, end: 20210403

REACTIONS (9)
  - Panic attack [None]
  - Loss of personal independence in daily activities [None]
  - Anxiety [None]
  - Crying [None]
  - Dizziness [None]
  - Nervousness [None]
  - Condition aggravated [None]
  - Mental impairment [None]
  - Insomnia [None]

NARRATIVE: CASE EVENT DATE: 20210403
